FAERS Safety Report 7772187-4 (Version None)
Quarter: 2011Q3

REPORT INFORMATION
  Report Type: 
  Country: None (occurrence: None)
  Receive Date: 20110922
  Receipt Date: 20110217
  Transmission Date: 20111222
  Serious: No
  Sender: FDA-Public Use
  Company Number: US-ASTRAZENECA-2011SE02185

PATIENT
  Age: 51 Year
  Sex: Male

DRUGS (3)
  1. SEROQUEL [Suspect]
     Indication: BIPOLAR I DISORDER
     Route: 048
  2. SEROQUEL [Suspect]
     Route: 048
     Dates: start: 20110216
  3. LAMICTAL [Concomitant]

REACTIONS (4)
  - SEDATION [None]
  - DRUG INTOLERANCE [None]
  - MOOD SWINGS [None]
  - ADVERSE DRUG REACTION [None]
